FAERS Safety Report 13611880 (Version 1)
Quarter: 2017Q2

REPORT INFORMATION
  Report Type: Spontaneous
  Country: US (occurrence: US)
  Receive Date: 20170605
  Receipt Date: 20170605
  Transmission Date: 20170830
  Serious: No
  Sender: FDA-Public Use
  Company Number: None

PATIENT
  Age: 59 Year
  Sex: Female
  Weight: 76.5 kg

DRUGS (7)
  1. SOMA [Concomitant]
     Active Substance: CARISOPRODOL
  2. KLONOPIN [Concomitant]
     Active Substance: CLONAZEPAM
  3. CALCIUM [Concomitant]
     Active Substance: CALCIUM
  4. PROZAC [Concomitant]
     Active Substance: FLUOXETINE HYDROCHLORIDE
  5. SEROQUEL [Concomitant]
     Active Substance: QUETIAPINE FUMARATE
  6. MAGNESIUM [Concomitant]
     Active Substance: MAGNESIUM
  7. LIDOCAINE. [Suspect]
     Active Substance: LIDOCAINE
     Indication: PAIN MANAGEMENT
     Dosage: ?          QUANTITY:1 PATCH(ES);?
     Route: 062

REACTIONS (5)
  - Anxiety [None]
  - Drug ineffective [None]
  - Chest discomfort [None]
  - Application site burn [None]
  - Wrong technique in product usage process [None]

NARRATIVE: CASE EVENT DATE: 20170601
